FAERS Safety Report 15080258 (Version 3)
Quarter: 2018Q3

REPORT INFORMATION
  Report Type: Report from Study
  Country: US (occurrence: US)
  Receive Date: 20180628
  Receipt Date: 20180713
  Transmission Date: 20181010
  Serious: No
  Sender: FDA-Public Use
  Company Number: US-AMGEN-USASL2018086257

PATIENT
  Age: 53 Year
  Sex: Female

DRUGS (2)
  1. ENBREL [Suspect]
     Active Substance: ETANERCEPT
     Indication: RHEUMATOID ARTHRITIS
     Dosage: 50 MG, QWK
     Route: 065
     Dates: start: 201701, end: 201708
  2. ENBREL [Suspect]
     Active Substance: ETANERCEPT
     Dosage: 50 MG, QWK
     Route: 065
     Dates: start: 2018

REACTIONS (6)
  - Wrong technique in product usage process [Unknown]
  - Depression [Unknown]
  - Bone deformity [Unknown]
  - Drug dose omission [Unknown]
  - Fungal skin infection [Unknown]
  - Localised infection [Unknown]

NARRATIVE: CASE EVENT DATE: 2017
